FAERS Safety Report 6800201-9 (Version None)
Quarter: 2010Q2

REPORT INFORMATION
  Report Type: 
  Country: None (occurrence: None)
  Receive Date: 20100616
  Receipt Date: 20100611
  Transmission Date: 20101027
  Serious: Yes (Life-Threatening)
  Sender: FDA-Public Use
  Company Number: 2010SP033051

PATIENT
  Age: 61 Year
  Sex: Female

DRUGS (2)
  1. CELESTONE [Suspect]
     Indication: DRUG USE FOR UNKNOWN INDICATION
     Dosage: ; ONCE; IM
     Route: 030
     Dates: start: 20100407, end: 20100407
  2. ROCEPHIN [Suspect]
     Indication: DRUG USE FOR UNKNOWN INDICATION
     Dosage: ; ONCE; IM
     Route: 030
     Dates: start: 20100407, end: 20100407

REACTIONS (4)
  - ANAPHYLACTIC SHOCK [None]
  - BRONCHOSPASM [None]
  - FORMICATION [None]
  - URTICARIA [None]
